FAERS Safety Report 23944385 (Version 3)
Quarter: 2025Q3

REPORT INFORMATION
  Report Type: Spontaneous
  Country: EU (occurrence: EU)
  Receive Date: 20240606
  Receipt Date: 20250714
  Transmission Date: 20251020
  Serious: Yes (Disabling, Other)
  Sender: ROCHE
  Company Number: None

PATIENT
  Age: 74 Year
  Sex: Male

DRUGS (5)
  1. VABYSMO [Suspect]
     Active Substance: FARICIMAB-SVOA
     Indication: Neovascular age-related macular degeneration
     Route: 050
  2. VABYSMO [Suspect]
     Active Substance: FARICIMAB-SVOA
     Route: 050
     Dates: start: 20240201, end: 20240514
  3. BIMATOPROST\TIMOLOL [Concomitant]
     Active Substance: BIMATOPROST\TIMOLOL
     Dates: start: 20220317
  4. TIMOLOL MALEATE [Concomitant]
     Active Substance: TIMOLOL MALEATE
     Dates: start: 20230111
  5. SIMBRINZA [Concomitant]
     Active Substance: BRIMONIDINE TARTRATE\BRINZOLAMIDE
     Dates: start: 20211216

REACTIONS (7)
  - Vitritis [Not Recovered/Not Resolved]
  - Eye inflammation [Not Recovered/Not Resolved]
  - Visual impairment [Recovered/Resolved with Sequelae]
  - Syringe issue [Unknown]
  - Iritis [Recovering/Resolving]
  - Off label use [Unknown]
  - Product complaint [Unknown]

NARRATIVE: CASE EVENT DATE: 20240514
